FAERS Safety Report 5612077-6 (Version None)
Quarter: 2008Q1

REPORT INFORMATION
  Report Type: 
  Country: None (occurrence: None)
  Receive Date: 20080204
  Receipt Date: 20080130
  Transmission Date: 20080703
  Serious: Yes (Other)
  Sender: FDA-Public Use
  Company Number: PHNU2008DE00767

PATIENT
  Age: 65 Year
  Sex: Female

DRUGS (2)
  1. FEMARA [Suspect]
     Indication: BREAST CANCER
     Dosage: UNK, UNK
     Route: 048
     Dates: start: 20080101
  2. FLUANXOL [Suspect]
     Indication: DEPRESSION
     Dates: start: 19880101

REACTIONS (3)
  - DEPRESSION [None]
  - DRUG INTERACTION [None]
  - PANIC ATTACK [None]
